FAERS Safety Report 22049289 (Version 2)
Quarter: 2023Q2

REPORT INFORMATION
  Report Type: Report from Study
  Country: US (occurrence: US)
  Receive Date: 20230301
  Receipt Date: 20230404
  Transmission Date: 20230721
  Serious: Yes (Other)
  Sender: FDA-Public Use
  Company Number: US-AMGEN-USASL2023005170

PATIENT
  Age: 87 Year
  Sex: Male

DRUGS (1)
  1. OTEZLA [Suspect]
     Active Substance: APREMILAST
     Indication: Psoriasis
     Dosage: 10MG DAILY X 8 DAYS, 20MG DAILY X 8 DAYS, 30MG DAILY FOR 8 DAYS/28 DAY STARTER PACK
     Route: 065
     Dates: start: 20230109

REACTIONS (3)
  - Heart rate decreased [Unknown]
  - Drug titration error [Unknown]
  - Therapy partial responder [Unknown]

NARRATIVE: CASE EVENT DATE: 20230101
